FAERS Safety Report 9391667 (Version 2)
Quarter: 2013Q3

REPORT INFORMATION
  Report Type: Spontaneous
  Country: US (occurrence: US)
  Receive Date: 20130709
  Receipt Date: 20130722
  Transmission Date: 20140515
  Serious: No
  Sender: FDA-Public Use
  Company Number: US-009507513-1307USA003430

PATIENT
  Sex: Female

DRUGS (2)
  1. A + D ORIGINAL OINTMENT [Suspect]
     Indication: PRODUCT USED FOR UNKNOWN INDICATION
     Dosage: UNK, QD
     Route: 061
  2. A + D ORIGINAL OINTMENT [Suspect]
     Indication: MEDICAL OBSERVATION

REACTIONS (2)
  - Application site discolouration [Unknown]
  - Product quality issue [Unknown]
